FAERS Safety Report 9285903 (Version 3)
Quarter: 2014Q3

REPORT INFORMATION
  Report Type: Spontaneous
  Country: US (occurrence: US)
  Receive Date: 20130513
  Receipt Date: 20140723
  Transmission Date: 20150326
  Serious: Yes (Hospitalization, Other)
  Sender: FDA-Public Use
  Company Number: US-BAYER-2013-058715

PATIENT
  Age: 33 Year
  Sex: Female
  Weight: 109 kg

DRUGS (3)
  1. YASMIN [Suspect]
     Active Substance: DROSPIRENONE\ETHINYL ESTRADIOL
     Indication: CONTRACEPTION
     Dosage: UNK
     Dates: start: 2005, end: 2006
  2. ALBUTEROL. [Concomitant]
     Active Substance: ALBUTEROL
     Dosage: UNK
     Dates: start: 20051121
  3. MAXALT [Concomitant]
     Active Substance: RIZATRIPTAN BENZOATE
     Dosage: UNK
     Route: 048
     Dates: start: 20060116

REACTIONS (12)
  - Deep vein thrombosis [None]
  - Pain [None]
  - Angiopathy [None]
  - Peripheral venous disease [None]
  - Impaired healing [None]
  - Thrombosis [None]
  - Anxiety [None]
  - Peripheral swelling [None]
  - Abdominal pain [None]
  - Injury [None]
  - Emotional distress [None]
  - General physical health deterioration [None]

NARRATIVE: CASE EVENT DATE: 200602
